FAERS Safety Report 5736382-8 (Version None)
Quarter: 2008Q2

REPORT INFORMATION
  Report Type: 
  Country: None (occurrence: None)
  Receive Date: 20080509
  Receipt Date: 20080509
  Transmission Date: 20081010
  Serious: No
  Sender: FDA-Public Use
  Company Number: None

PATIENT
  Age: 75 Year
  Sex: Female

DRUGS (1)
  1. DIGOXIN [Suspect]
     Indication: CARDIAC DISORDER
     Dosage: ONE DAILY PO (DURATION: OVER 1 MONTH)
     Route: 048

REACTIONS (5)
  - DIZZINESS [None]
  - DYSPNOEA [None]
  - HEADACHE [None]
  - HYPOTENSION [None]
  - PHARMACEUTICAL PRODUCT COMPLAINT [None]
